FAERS Safety Report 9463853 (Version 4)
Quarter: 2014Q1

REPORT INFORMATION
  Report Type: Spontaneous
  Country: US (occurrence: US)
  Receive Date: 20130819
  Receipt Date: 20140103
  Transmission Date: 20141002
  Serious: Yes (Other)
  Sender: FDA-Public Use
  Company Number: US-PFIZER INC-2013236116

PATIENT
  Age: 64 Year
  Sex: Female

DRUGS (3)
  1. XALKORI [Suspect]
     Indication: ADENOCARCINOMA
     Dosage: 250 MG, Q 12 HOURS
     Route: 048
     Dates: start: 201306
  2. XALKORI [Suspect]
     Dosage: 250 MG, 2X/DAY
     Route: 048
     Dates: start: 201309
  3. XALKORI [Suspect]
     Dosage: 250 MG, UNK
     Dates: start: 201310

REACTIONS (9)
  - Duodenal ulcer perforation [Unknown]
  - Cerebral infarction [Unknown]
  - Carotid artery occlusion [Unknown]
  - Nausea [Recovering/Resolving]
  - Abdominal pain [Unknown]
  - Muscular weakness [Unknown]
  - Abdominal discomfort [Unknown]
  - Balance disorder [Recovered/Resolved]
  - Asthenia [Unknown]
